FAERS Safety Report 13356761 (Version 1)
Quarter: 2017Q1

REPORT INFORMATION
  Report Type: Spontaneous
  Country: US (occurrence: US)
  Receive Date: 20170321
  Receipt Date: 20170321
  Transmission Date: 20170509
  Serious: Yes (Hospitalization, Other)
  Sender: FDA-Public Use
  Company Number: US-GILEAD-2017-0263052

PATIENT
  Sex: Male

DRUGS (1)
  1. IDELALISIB [Suspect]
     Active Substance: IDELALISIB
     Indication: CHRONIC LYMPHOCYTIC LEUKAEMIA
     Dosage: UNK
     Route: 065
     Dates: end: 20170202

REACTIONS (6)
  - Fatigue [Unknown]
  - Chills [Unknown]
  - Acute myocardial infarction [Unknown]
  - Atrial fibrillation [Unknown]
  - Dyspnoea [Unknown]
  - Hepatic enzyme increased [Unknown]
